FAERS Safety Report 17219465 (Version 1)
Quarter: 2019Q4

REPORT INFORMATION
  Report Type: Spontaneous
  Country: US (occurrence: US)
  Receive Date: 20191209
  Receipt Date: 20191209
  Transmission Date: 20200122
  Serious: No
  Sender: FDA-Public Use
  Company Number: None

PATIENT
  Age: 10 Year
  Sex: Male

DRUGS (2)
  1. AFINITOR DISPERZ [Concomitant]
     Active Substance: EVEROLIMUS
  2. KISQALI [Suspect]
     Active Substance: RIBOCICLIB
     Route: 048
     Dates: start: 201912

REACTIONS (2)
  - Product use in unapproved indication [None]
  - Product use issue [None]

NARRATIVE: CASE EVENT DATE: 20191209
